FAERS Safety Report 11149663 (Version 1)
Quarter: 2015Q2

REPORT INFORMATION
  Report Type: Spontaneous
  Country: US (occurrence: US)
  Receive Date: 20150529
  Receipt Date: 20150529
  Transmission Date: 20150821
  Serious: No
  Sender: FDA-Public Use
  Company Number: US-BAYER-2015-190038

PATIENT
  Age: 81 Year
  Sex: Female
  Weight: 43.99 kg

DRUGS (5)
  1. SIMVASTATIN. [Concomitant]
     Active Substance: SIMVASTATIN
     Indication: BLOOD CHOLESTEROL INCREASED
     Dosage: 40 MG, QD
     Route: 048
     Dates: start: 2008
  2. CLIMARA [Suspect]
     Active Substance: ESTRADIOL
     Indication: ATROPHIC VULVOVAGINITIS
     Dosage: 0.1 MG, OW
     Route: 062
     Dates: start: 20150304, end: 20150429
  3. PLAVIX [Concomitant]
     Active Substance: CLOPIDOGREL BISULFATE
     Indication: APPLICATION SITE PLAQUE
     Dosage: 1 DF, QD
     Route: 048
     Dates: start: 201504
  4. LOSARTAN POTASSIUM. [Concomitant]
     Active Substance: LOSARTAN POTASSIUM
     Indication: HYPERTENSION
     Dosage: 100 MG, QD
     Route: 048
     Dates: start: 2012
  5. ESTER C [CALCIUM ASCORBATE] [Concomitant]
     Dosage: UNK
     Dates: start: 2005

REACTIONS (2)
  - Back pain [Recovering/Resolving]
  - Intentional medical device removal by patient [None]

NARRATIVE: CASE EVENT DATE: 20150422
